FAERS Safety Report 10255491 (Version 2)
Quarter: 2014Q2

REPORT INFORMATION
  Report Type: Spontaneous
  Country: US (occurrence: US)
  Receive Date: 20140624
  Receipt Date: 20140624
  Transmission Date: 20141212
  Serious: Yes (Hospitalization, Other)
  Sender: FDA-Public Use
  Company Number: US-MUNDIPHARMA DS AND PHARMACOVIGILANCE-USA-2014-0114350

PATIENT
  Age: 79 Year
  Sex: Female
  Weight: 52.15 kg

DRUGS (3)
  1. BUTRANS [Suspect]
     Indication: PAIN
     Dosage: 5 MCG/HR, WEEKLY
     Route: 062
     Dates: start: 20140326, end: 20140405
  2. BUTRANS [Suspect]
     Dosage: UNK
     Route: 062
  3. COUMADIN                           /00014802/ [Suspect]
     Indication: PRODUCT USED FOR UNKNOWN INDICATION
     Dosage: UNKNOWN

REACTIONS (4)
  - Hallucination [Recovered/Resolved]
  - Diarrhoea [Unknown]
  - Unevaluable event [Unknown]
  - Subdural haematoma [Recovered/Resolved]
